FAERS Safety Report 15770383 (Version 1)
Quarter: 2018Q4

REPORT INFORMATION
  Report Type: Spontaneous
  Country: DE (occurrence: DE)
  Receive Date: 20181228
  Receipt Date: 20181228
  Transmission Date: 20190205
  Serious: Yes (Other)
  Sender: FDA-Public Use
  Company Number: DE-TEVA-2018-DE-992221

PATIENT
  Age: 56 Year
  Sex: Male

DRUGS (3)
  1. FLUTICA-TEVA 50 MICROGRAMM NASENSPRAY, SUSPENSION [Suspect]
     Active Substance: FLUTICASONE PROPIONATE
     Indication: RHINITIS PERENNIAL
     Route: 045
     Dates: start: 2016
  2. FLUTICA-TEVA 50 MICROGRAMM NASENSPRAY, SUSPENSION [Interacting]
     Active Substance: FLUTICASONE PROPIONATE
     Indication: SINUSITIS
  3. MEDIKINET ADULT [Interacting]
     Active Substance: METHYLPHENIDATE
     Route: 065
     Dates: start: 20181205

REACTIONS (2)
  - Tongue oedema [Not Recovered/Not Resolved]
  - Drug interaction [Unknown]

NARRATIVE: CASE EVENT DATE: 20181213
